FAERS Safety Report 6956813-5 (Version None)
Quarter: 2010Q3

REPORT INFORMATION
  Report Type: 
  Country: None (occurrence: None)
  Receive Date: 20100826
  Receipt Date: 20100813
  Transmission Date: 20110219
  Serious: Yes (Other)
  Sender: FDA-Public Use
  Company Number: 2010MA001773

PATIENT
  Age: 17 Year
  Sex: Female

DRUGS (8)
  1. CLOTRIMAZOLE [Suspect]
     Indication: CANDIDIASIS
     Dates: start: 20091215
  2. DIAZEPAM [Suspect]
     Indication: SEDATION
     Dosage: 2 MG, TID, PO
     Route: 048
     Dates: start: 20091013, end: 20091016
  3. AMOXICILLIN [Suspect]
     Indication: URINARY TRACT INFECTION
     Dosage: 500 MG;TID;PO
     Route: 048
     Dates: start: 20091222
  4. CERVARIX (NO PREF. NAME) [Suspect]
     Indication: PROPHYLAXIS
     Dosage: 1X; IM
     Route: 030
     Dates: start: 20091101, end: 20091101
  5. NORDETTE-28 [Concomitant]
  6. FOLIC ACID [Concomitant]
  7. CLENIL MODULITE [Concomitant]
  8. ALBUTEROL SULFATE AUTOHALER [Concomitant]

REACTIONS (3)
  - ABORTION SPONTANEOUS [None]
  - DRUG EXPOSURE DURING PREGNANCY [None]
  - PREGNANCY [None]
